FAERS Safety Report 24438604 (Version 2)
Quarter: 2025Q1

REPORT INFORMATION
  Report Type: Spontaneous
  Country: US (occurrence: US)
  Receive Date: 20241015
  Receipt Date: 20250109
  Transmission Date: 20250409
  Serious: Yes (Death)
  Sender: JOHNSON AND JOHNSON
  Company Number: US-JNJFOC-20241038655

PATIENT
  Sex: Female

DRUGS (6)
  1. RISPERDAL [Suspect]
     Active Substance: RISPERIDONE
     Indication: Product used for unknown indication
     Route: 048
     Dates: start: 2007, end: 20150715
  2. DILAUDID [Concomitant]
     Active Substance: HYDROMORPHONE HYDROCHLORIDE
  3. DARVOCET [Concomitant]
     Active Substance: ACETAMINOPHEN\PROPOXYPHENE HYDROCHLORIDE
  4. HYDROMORPHONE [Concomitant]
     Active Substance: HYDROMORPHONE
  5. MIDAZOLAM [Concomitant]
     Active Substance: MIDAZOLAM
  6. TYLENOL [Concomitant]
     Active Substance: ACETAMINOPHEN

REACTIONS (1)
  - Death [Fatal]
